FAERS Safety Report 4863782-0 (Version None)
Quarter: 2005Q4

REPORT INFORMATION
  Report Type: 
  Country: None (occurrence: None)
  Receive Date: 20051222
  Receipt Date: 20050817
  Transmission Date: 20060501
  Serious: No
  Sender: FDA-Public Use
  Company Number: US-GLAXOSMITHKLINE-A0570667A

PATIENT
  Age: 49 Year
  Sex: Male

DRUGS (2)
  1. FLONASE [Suspect]
     Route: 045
  2. WARTEC [Concomitant]

REACTIONS (3)
  - ALCOHOL POISONING [None]
  - HEADACHE [None]
  - SPEECH DISORDER [None]
